FAERS Safety Report 8720867 (Version 4)
Quarter: 2013Q1

REPORT INFORMATION
  Report Type: Spontaneous
  Country: US (occurrence: US)
  Receive Date: 20120813
  Receipt Date: 20130328
  Transmission Date: 20140127
  Serious: Yes (Hospitalization)
  Sender: FDA-Public Use
  Company Number: US-GLAXOSMITHKLINE-A0921713A

PATIENT
  Age: 55 Year
  Sex: Female
  Weight: 77 kg

DRUGS (8)
  1. REVATIO [Concomitant]
     Dosage: 20NG THREE TIMES PER DAY
     Route: 048
  2. FLOLAN [Suspect]
     Indication: PULMONARY ARTERIAL HYPERTENSION
     Dosage: 20NGKM UNKNOWN
     Route: 042
     Dates: start: 20110126
  3. AMOXICILLIN [Suspect]
     Indication: PRODUCT USED FOR UNKNOWN INDICATION
     Route: 065
  4. POTASSIUM HYDROCHLORIDE [Suspect]
  5. TRACLEER [Concomitant]
     Indication: PRODUCT USED FOR UNKNOWN INDICATION
     Dosage: 125MG TWICE PER DAY
     Route: 048
  6. LASIX [Concomitant]
  7. COUMADIN [Concomitant]
  8. OXYGEN [Concomitant]

REACTIONS (14)
  - Infusion site cellulitis [Recovered/Resolved]
  - Pseudomonas infection [Unknown]
  - Suspected transmission of an infectious agent via product [Unknown]
  - Rash [Unknown]
  - Skin discolouration [Unknown]
  - Hypersensitivity [Unknown]
  - Pain in extremity [Unknown]
  - Ear infection [Unknown]
  - Pyrexia [Recovered/Resolved]
  - Blister [Unknown]
  - Purulent discharge [Recovered/Resolved]
  - Pruritus [Unknown]
  - Catheter site cellulitis [None]
  - Drug eruption [None]
